FAERS Safety Report 10290557 (Version 4)
Quarter: 2015Q3

REPORT INFORMATION
  Report Type: Report from Study
  Country: US (occurrence: US)
  Receive Date: 20140710
  Receipt Date: 20150729
  Transmission Date: 20151125
  Serious: Yes (Other)
  Sender: FDA-Public Use
  Company Number: US-SA-2014SA082553

PATIENT
  Age: 34 Year
  Sex: Male

DRUGS (2)
  1. AUBAGIO [Suspect]
     Active Substance: TERIFLUNOMIDE
     Indication: MULTIPLE SCLEROSIS
     Route: 048
  2. AUBAGIO [Suspect]
     Active Substance: TERIFLUNOMIDE
     Indication: MULTIPLE SCLEROSIS
     Route: 048
     Dates: start: 20140604

REACTIONS (7)
  - Drug dose omission [Unknown]
  - Balance disorder [Unknown]
  - Fatigue [Unknown]
  - Mobility decreased [Unknown]
  - Psychomotor hyperactivity [Unknown]
  - Hyporesponsive to stimuli [Unknown]
  - Walking aid user [Unknown]

NARRATIVE: CASE EVENT DATE: 2014
